FAERS Safety Report 4379116-4 (Version None)
Quarter: 2004Q2

REPORT INFORMATION
  Report Type: 
  Country: None (occurrence: None)
  Receive Date: 20040610
  Receipt Date: 20040602
  Transmission Date: 20050107
  Serious: No
  Sender: FDA-Public Use
  Company Number: 2004UW11395

PATIENT
  Age: 55 Year
  Sex: Male

DRUGS (11)
  1. ATENOLOL [Suspect]
     Indication: ILL-DEFINED DISORDER
  2. NORVASC [Suspect]
     Indication: CARDIAC DISORDER
     Dosage: 5 MG QD PO
     Dates: start: 19990513
  3. NORVASC [Suspect]
     Indication: HYPERTENSION
     Dosage: 5 MG QD PO
     Dates: start: 19990513
  4. BENAZEPRIL HCL [Concomitant]
  5. SIMVASTATIN [Concomitant]
  6. DILTIAZEM HYDROCHLORIDE [Concomitant]
  7. TOCOPHEROL CONCENTRATE CAP [Concomitant]
  8. ASPIRIN [Concomitant]
  9. METOPROLOL TARTRATE [Concomitant]
  10. LINSEED OIL [Concomitant]
  11. FISH OIL [Concomitant]

REACTIONS (14)
  - ARTHRALGIA [None]
  - BACK DISORDER [None]
  - BLINDNESS UNILATERAL [None]
  - BLOOD GLUCOSE INCREASED [None]
  - DISEASE RECURRENCE [None]
  - ERYTHEMA [None]
  - FATIGUE [None]
  - FEELING HOT [None]
  - FLUSHING [None]
  - HEADACHE [None]
  - HYPERTENSION [None]
  - JOINT SWELLING [None]
  - PERIPHERAL COLDNESS [None]
  - PHOTOPHOBIA [None]
